FAERS Safety Report 6104110-2 (Version None)
Quarter: 2009Q1

REPORT INFORMATION
  Report Type: 
  Country: None (occurrence: None)
  Receive Date: 20090305
  Receipt Date: 20090224
  Transmission Date: 20090719
  Serious: Yes (Hospitalization)
  Sender: FDA-Public Use
  Company Number: PHEH2009US02038

PATIENT
  Sex: Female
  Weight: 70.748 kg

DRUGS (4)
  1. ZOMETA [Suspect]
     Indication: METASTASES TO BONE
     Dosage: 4 MG, QMO
     Route: 042
     Dates: start: 20020301
  2. ZOMETA [Suspect]
     Indication: BREAST CANCER
  3. SYNTHROID [Concomitant]
     Route: 048
  4. PROTONIX [Concomitant]
     Route: 048

REACTIONS (3)
  - FEMUR FRACTURE [None]
  - PATHOLOGICAL FRACTURE [None]
  - REHABILITATION THERAPY [None]
